FAERS Safety Report 5636659-0 (Version None)
Quarter: 2008Q1

REPORT INFORMATION
  Report Type: 
  Country: None (occurrence: None)
  Receive Date: 20080225
  Receipt Date: 20080211
  Transmission Date: 20080703
  Serious: Yes (Other)
  Sender: FDA-Public Use
  Company Number: US-ROCHE-546488

PATIENT
  Age: 62 Year
  Sex: Female
  Weight: 56.7 kg

DRUGS (20)
  1. CELLCEPT [Suspect]
     Indication: ILL-DEFINED DISORDER
     Dosage: FREQUENCY REPORTED AS TWO DOSE FORM IN MORNING AND TWO DOSE FORM IN EVENING.
     Route: 048
     Dates: start: 20050101
  2. NEXIUM [Concomitant]
  3. HYDROCODONE BITARTRATE [Concomitant]
  4. GENERIC UNKNOWN [Concomitant]
     Dosage: DRUG REPORTED AS FLOURSEMIDE
  5. COREG [Concomitant]
  6. SKELAXIN [Concomitant]
  7. ALPRAZOLAM [Concomitant]
  8. REQUIP [Concomitant]
     Dosage: DRUG REPORTED AS REQUIPO
  9. SYNTHROID [Concomitant]
  10. LIPITOR [Concomitant]
  11. LEXAPRO [Concomitant]
  12. ASPIRIN [Concomitant]
     Dosage: DRUG REPORTED AS BAYER LOW DOSE ASPIRIN
  13. COLACE [Concomitant]
  14. AVAPRO [Concomitant]
  15. FEXOFENADINE HCL [Concomitant]
     Dosage: DRUG REPORTED AS FEXOFENNADINE HCL
  16. SPIRONOLACTONE [Concomitant]
  17. BECONASE AQ [Concomitant]
  18. PROCHLORPERAZINE [Concomitant]
  19. MAGNESIUM SUPPLEMENT [Concomitant]
  20. VITAMIN [Concomitant]
     Dosage: DRUG REPORTED AS ONE A DAY VITAMIN

REACTIONS (4)
  - CARDIAC VALVE DISEASE [None]
  - MYOCARDIAL INFARCTION [None]
  - SPINAL COLUMN STENOSIS [None]
  - SPINAL CORD COMPRESSION [None]
